FAERS Safety Report 9736152 (Version 3)
Quarter: 2014Q1

REPORT INFORMATION
  Report Type: Spontaneous
  Country: JP (occurrence: JP)
  Receive Date: 20131206
  Receipt Date: 20140114
  Transmission Date: 20141002
  Serious: Yes (Death, Other)
  Sender: FDA-Public Use
  Company Number: JP-JNJFOC-20131200940

PATIENT
  Age: 67 Year
  Sex: Male

DRUGS (13)
  1. RISPERDAL CONSTA [Suspect]
     Indication: SCHIZOPHRENIA
     Route: 030
     Dates: start: 20130606, end: 20130620
  2. RISPERDAL CONSTA [Suspect]
     Indication: SCHIZOPHRENIA
     Route: 030
     Dates: start: 20130704, end: 20130718
  3. RISPERDAL CONSTA [Suspect]
     Indication: SCHIZOPHRENIA
     Route: 030
     Dates: start: 20130801, end: 20131120
  4. PAXIL [Concomitant]
     Route: 065
  5. ZYPREXA [Concomitant]
     Indication: SCHIZOPHRENIA
     Route: 048
     Dates: end: 20131112
  6. ZYPREXA [Concomitant]
     Indication: SCHIZOPHRENIA
     Route: 048
     Dates: start: 20131116, end: 20131120
  7. ZYPREXA [Concomitant]
     Indication: SCHIZOPHRENIA
     Route: 048
     Dates: start: 20131113, end: 20131115
  8. ABILIFY [Concomitant]
     Indication: SCHIZOPHRENIA
     Route: 048
     Dates: end: 20131113
  9. TOWAZUREN [Concomitant]
     Route: 048
     Dates: start: 20131113
  10. FAMOTIDINE [Concomitant]
     Route: 048
     Dates: start: 20131113
  11. LEVOTOMIN [Concomitant]
     Route: 048
     Dates: end: 20131116
  12. SODIUM VALPROATE [Concomitant]
     Indication: SCHIZOPHRENIA
     Route: 048
     Dates: start: 20131122
  13. SODIUM VALPROATE [Concomitant]
     Indication: SCHIZOPHRENIA
     Route: 048
     Dates: end: 20131121

REACTIONS (8)
  - Hypoxia [Fatal]
  - Convulsion [Unknown]
  - Decreased appetite [Unknown]
  - Abdominal pain upper [Unknown]
  - Constipation [Unknown]
  - Weight decreased [Unknown]
  - Asthenia [Unknown]
  - Diarrhoea [Unknown]
